FAERS Safety Report 23283542 (Version 1)
Quarter: 2023Q4

REPORT INFORMATION
  Report Type: Spontaneous
  Country: KR (occurrence: KR)
  Receive Date: 20231211
  Receipt Date: 20231211
  Transmission Date: 20240109
  Serious: Yes (Hospitalization, Other)
  Sender: FDA-Public Use
  Company Number: KR-MYLANLABS-2023M1130713

PATIENT
  Age: 66 Year

DRUGS (5)
  1. VIAGRA [Suspect]
     Active Substance: SILDENAFIL CITRATE
     Indication: Pulmonary hypertension
     Dosage: 0.5 DOSAGE FORM, BID
     Route: 065
     Dates: start: 20200608, end: 20200615
  2. WARFARIN SODIUM [Suspect]
     Active Substance: WARFARIN SODIUM
     Indication: Pulmonary hypertension
     Dosage: 1 DOSAGE FORM, QD
     Route: 065
     Dates: start: 20200608, end: 20200614
  3. AZELASTINE HYDROCHLORIDE [Suspect]
     Active Substance: AZELASTINE HYDROCHLORIDE
     Indication: Pneumonia
     Dosage: 1 DOSAGE FORM, BID
     Route: 065
     Dates: start: 20200529, end: 20200615
  4. AMBROXOL HYDROCHLORIDE [Suspect]
     Active Substance: AMBROXOL HYDROCHLORIDE
     Indication: Pneumonia
     Dosage: 1 DOSAGE FORM, TID
     Route: 065
     Dates: start: 20200528, end: 20200615
  5. CEFEPIME HYDROCHLORIDE [Concomitant]
     Active Substance: CEFEPIME HYDROCHLORIDE
     Indication: Pneumonia
     Dosage: 2 DOSAGE FORM, TID
     Route: 065
     Dates: start: 20200528, end: 20200602

REACTIONS (1)
  - Stevens-Johnson syndrome [Unknown]

NARRATIVE: CASE EVENT DATE: 20200613
